FAERS Safety Report 6242913-4 (Version None)
Quarter: 2009Q2

REPORT INFORMATION
  Report Type: 
  Country: None (occurrence: None)
  Receive Date: 20090624
  Receipt Date: 20090615
  Transmission Date: 20091009
  Serious: Yes (Hospitalization)
  Sender: FDA-Public Use
  Company Number: DE-BAYER-200913077GPV

PATIENT
  Sex: Female

DRUGS (1)
  1. MIRENA [Suspect]
     Indication: CONTRACEPTION
     Route: 015
     Dates: start: 20040518, end: 20080408

REACTIONS (14)
  - ALCOHOL INTOLERANCE [None]
  - BACK PAIN [None]
  - CARDIAC FLUTTER [None]
  - CONVERSION DISORDER [None]
  - DEPRESSION [None]
  - DIZZINESS [None]
  - FATIGUE [None]
  - FEELING OF BODY TEMPERATURE CHANGE [None]
  - LISTLESS [None]
  - MENTAL DISORDER [None]
  - PAIN IN EXTREMITY [None]
  - PANIC ATTACK [None]
  - PERFORMANCE STATUS DECREASED [None]
  - RESTLESSNESS [None]
